FAERS Safety Report 25113921 (Version 1)
Quarter: 2025Q1

REPORT INFORMATION
  Report Type: Spontaneous
  Country: TR (occurrence: TR)
  Receive Date: 20250324
  Receipt Date: 20250324
  Transmission Date: 20250408
  Serious: Yes (Other)
  Sender: DENTSPLY
  Company Number: TR-DENTSPLY-2025SCDP000076

PATIENT
  Age: 54 Year
  Sex: Male

DRUGS (2)
  1. LIDOCAINE\PRILOCAINE [Suspect]
     Active Substance: LIDOCAINE\PRILOCAINE
     Indication: Local anaesthesia
  2. LIDOCAINE\PRILOCAINE [Suspect]
     Active Substance: LIDOCAINE\PRILOCAINE
     Indication: Nerve block

REACTIONS (3)
  - Myoclonus [Recovered/Resolved]
  - Hypertension [Unknown]
  - Sleep disorder [Unknown]
